FAERS Safety Report 13667847 (Version 1)
Quarter: 2017Q2

REPORT INFORMATION
  Report Type: Spontaneous
  Country: US (occurrence: US)
  Receive Date: 20170619
  Receipt Date: 20170619
  Transmission Date: 20170830
  Serious: Yes (Other)
  Sender: FDA-Public Use
  Company Number: None

PATIENT
  Age: 32 Year
  Sex: Male

DRUGS (5)
  1. FUROSEMIDE. [Concomitant]
     Active Substance: FUROSEMIDE
  2. TRIAMCINOLONE OINTMENT [Concomitant]
  3. CARBAMAZEPINE. [Concomitant]
     Active Substance: CARBAMAZEPINE
  4. TRACLEER [Suspect]
     Active Substance: BOSENTAN
     Indication: PULMONARY ARTERIAL HYPERTENSION
     Route: 048
     Dates: start: 20170608, end: 20170611
  5. KETOTIFEN [Concomitant]
     Active Substance: KETOTIFEN

REACTIONS (3)
  - Pruritus [None]
  - Therapy cessation [None]
  - Rash [None]

NARRATIVE: CASE EVENT DATE: 20170608
